FAERS Safety Report 5792051-X (Version None)
Quarter: 2008Q2

REPORT INFORMATION
  Report Type: 
  Country: None (occurrence: None)
  Receive Date: 20080626
  Receipt Date: 20080620
  Transmission Date: 20081010
  Serious: Yes (Other)
  Sender: FDA-Public Use
  Company Number: PHBS2008DE04878

PATIENT
  Sex: Female

DRUGS (1)
  1. PRAVIDEL [Suspect]
     Indication: GALACTORRHOEA
     Dosage: UNK, UNK
     Route: 065
     Dates: end: 20080609

REACTIONS (3)
  - BRAIN OEDEMA [None]
  - DIPLOPIA [None]
  - HEADACHE [None]
